FAERS Safety Report 8772587 (Version 2)
Quarter: 2013Q1

REPORT INFORMATION
  Report Type: Spontaneous
  Country: GB (occurrence: GB)
  Receive Date: 20120905
  Receipt Date: 20130104
  Transmission Date: 20140127
  Serious: Yes (Other)
  Sender: FDA-Public Use
  Company Number: GB-TEVA-357236USA

PATIENT
  Sex: Female

DRUGS (3)
  1. TREANDA [Suspect]
     Indication: LYMPHOMA
     Dosage: CYCLIC
     Dates: start: 201111
  2. RITUXIMAB [Suspect]
     Dates: start: 20111130
  3. RITUXIMAB [Suspect]
     Dosage: REGIMEN #2
     Dates: start: 20111130, end: 20111201

REACTIONS (3)
  - Skin reaction [Recovered/Resolved]
  - Mucosal inflammation [Recovered/Resolved]
  - Face oedema [Recovered/Resolved]
